FAERS Safety Report 9740282 (Version 1)
Quarter: 2013Q4

REPORT INFORMATION
  Report Type: Spontaneous
  Country: US (occurrence: US)
  Receive Date: 20131209
  Receipt Date: 20131209
  Transmission Date: 20140711
  Serious: No
  Sender: FDA-Public Use
  Company Number: US-BIOGENIDEC-2013BI094644

PATIENT
  Age: 60 Year
  Sex: Female

DRUGS (7)
  1. TECFIDERA [Suspect]
     Indication: MULTIPLE SCLEROSIS
     Route: 048
     Dates: start: 20130905
  2. TECFIDERA [Suspect]
     Indication: MULTIPLE SCLEROSIS
     Route: 048
  3. SYNTHROID [Concomitant]
  4. ATENOLOL [Concomitant]
  5. SIMVASTATIN [Concomitant]
  6. ALPRAZOLAM [Concomitant]
  7. LORTAB [Concomitant]

REACTIONS (7)
  - Malaise [Recovered/Resolved]
  - Abdominal distension [Recovered/Resolved]
  - Flushing [Recovered/Resolved]
  - Abdominal pain [Recovered/Resolved]
  - Burning sensation [Recovered/Resolved]
  - Nausea [Recovered/Resolved]
  - Vomiting [Recovered/Resolved]
